FAERS Safety Report 5416520-7 (Version None)
Quarter: 2007Q3

REPORT INFORMATION
  Report Type: 
  Country: None (occurrence: None)
  Receive Date: 20070814
  Receipt Date: 20070808
  Transmission Date: 20080115
  Serious: Yes (Hospitalization)
  Sender: FDA-Public Use
  Company Number: E2090-00289-SPO-JP

PATIENT
  Age: 56 Year
  Sex: Male

DRUGS (4)
  1. ZONISAMIDE [Suspect]
     Indication: CONVULSION PROPHYLAXIS
     Dosage: 200 MG, ORAL
     Route: 048
     Dates: start: 20070618, end: 20070707
  2. ZONISAMIDE [Suspect]
     Indication: SUBARACHNOID HAEMORRHAGE
     Dosage: 200 MG, ORAL
     Route: 048
     Dates: start: 20070618, end: 20070707
  3. CEFAMEZIN ALPHA               (CEFAZOLIN SODIUM) [Concomitant]
  4. LOXONIN                 (LOXOPROFEN SODIUM) [Concomitant]

REACTIONS (2)
  - DRUG ERUPTION [None]
  - RASH ERYTHEMATOUS [None]
